FAERS Safety Report 9064947 (Version 1)
Quarter: 2013Q1

REPORT INFORMATION
  Report Type: Report from Study
  Country: US (occurrence: US)
  Receive Date: 20130131
  Receipt Date: 20130131
  Transmission Date: 20140127
  Serious: No
  Sender: FDA-Public Use
  Company Number: US-ABBOTT-12P-163-1008854-00

PATIENT
  Age: 28 Year
  Sex: Male

DRUGS (3)
  1. HUMIRA [Suspect]
     Indication: CROHN^S DISEASE
     Dates: start: 20120925
  2. ZOLOFT [Concomitant]
     Indication: ANXIETY
     Dosage: 50 MG DAILY
     Route: 048
  3. APRISO [Concomitant]
     Indication: COLITIS ULCERATIVE
     Dosage: 3 TABLETS DAILY
     Route: 048

REACTIONS (1)
  - Cough [Recovered/Resolved]
